FAERS Safety Report 4861464-2 (Version None)
Quarter: 2005Q4

REPORT INFORMATION
  Report Type: 
  Country: None (occurrence: None)
  Receive Date: 20051220
  Receipt Date: 20051212
  Transmission Date: 20060501
  Serious: Yes (Hospitalization)
  Sender: FDA-Public Use
  Company Number: JP-JNJFOC-20051105671

PATIENT
  Sex: Male

DRUGS (2)
  1. NEOPERIDOL [Suspect]
     Indication: SEDATION
     Route: 030
  2. NEOPERIDOL [Suspect]
     Route: 030

REACTIONS (13)
  - ANOREXIA [None]
  - CONVULSION [None]
  - DELIRIUM [None]
  - DYSKINESIA [None]
  - EXTRAPYRAMIDAL DISORDER [None]
  - ILEUS PARALYTIC [None]
  - OCULOGYRATION [None]
  - PARKINSONISM [None]
  - RHABDOMYOLYSIS [None]
  - SOMNOLENCE [None]
  - TORTICOLLIS [None]
  - URINARY RETENTION [None]
  - VOMITING [None]
